FAERS Safety Report 7319857-X (Version None)
Quarter: 2011Q1

REPORT INFORMATION
  Report Type: 
  Country: None (occurrence: None)
  Receive Date: 20110216
  Receipt Date: 20110204
  Transmission Date: 20110831
  Serious: Yes (Death)
  Sender: FDA-Public Use
  Company Number: TRP_07552_2011

PATIENT
  Age: 7 Year
  Sex: Female
  Weight: 14.5 kg

DRUGS (7)
  1. IMMUNE GLOBULIN (HUMAN) [Suspect]
     Indication: IMMUNOGLOBULIN THERAPY
     Dosage: 400 MG/1X/MONTH INTRAVENOUS
     Route: 042
  2. G-CSF (G-CSF) [Suspect]
     Indication: NEUTROPENIA
     Dosage: 5 UG/KG QD)
  3. URSODIOL [Suspect]
     Indication: PRODUCT USED FOR UNKNOWN INDICATION
     Dosage: 20 MG/KG, QD
  4. PNEUMOCYSTIS CARINII PROPHYLAXIS [Suspect]
     Indication: ANTIFUNGAL PROPHYLAXIS
     Dosage: DF
  5. AMPHOTERICIN B [Suspect]
     Indication: ASPERGILLOSIS
     Dosage: 5MG/KG PER DAY FOR 5 MONTHS
  6. ACYCLOVIR [Suspect]
     Indication: ASPERGILLOSIS
     Dosage: 1500 MG/M2 QD
  7. BROAD SPECTRUM ANTIBIOTICS [Suspect]
     Indication: ANTIBIOTIC THERAPY
     Dosage: DF

REACTIONS (5)
  - ASPERGILLOSIS [None]
  - NERVOUS SYSTEM DISORDER [None]
  - BLOOD URIC ACID DECREASED [None]
  - DRUG INEFFECTIVE [None]
  - MYCOBACTERIAL INFECTION [None]
